FAERS Safety Report 6945596-0 (Version None)
Quarter: 2010Q3

REPORT INFORMATION
  Report Type: 
  Country: None (occurrence: None)
  Receive Date: 20100819
  Receipt Date: 20100809
  Transmission Date: 20110219
  Serious: Yes (Other)
  Sender: FDA-Public Use
  Company Number: 2010AP001721

PATIENT
  Age: 69 Year
  Sex: Female
  Weight: 63.5036 kg

DRUGS (2)
  1. KETOTIFEN FUMARATE [Suspect]
     Indication: EYE PRURITUS
     Dosage: 1 GTT; BID; OPH
     Route: 047
     Dates: start: 20100101, end: 20100104
  2. SIMVASTATIN [Concomitant]

REACTIONS (4)
  - DRUG INEFFECTIVE [None]
  - EYE IRRITATION [None]
  - EYE PRURITUS [None]
  - VISUAL IMPAIRMENT [None]
